FAERS Safety Report 4512266-8 (Version None)
Quarter: 2004Q4

REPORT INFORMATION
  Report Type: 
  Country: None (occurrence: None)
  Receive Date: 20041129
  Receipt Date: 20030612
  Transmission Date: 20050328
  Serious: Yes (Hospitalization)
  Sender: FDA-Public Use
  Company Number: US-GLAXOSMITHKLINE-A0412895A

PATIENT
  Age: 49 Year
  Sex: Female
  Weight: 66.8 kg

DRUGS (4)
  1. PAXIL [Suspect]
     Indication: DEPRESSION
     Dosage: 20MG AT NIGHT
     Route: 048
     Dates: start: 19970101
  2. DESYREL [Concomitant]
     Indication: DEPRESSION
     Dosage: 50MG AT NIGHT
     Route: 048
  3. MEVACOR [Concomitant]
     Indication: DRUG USE FOR UNKNOWN INDICATION
     Route: 048
  4. ESTRACE [Concomitant]
     Indication: DRUG USE FOR UNKNOWN INDICATION
     Dosage: 2MG AT NIGHT
     Route: 048

REACTIONS (26)
  - ABNORMAL DREAMS [None]
  - AGITATION [None]
  - ANXIETY [None]
  - ASTHENIA [None]
  - CONFUSIONAL STATE [None]
  - CONVULSION [None]
  - CRYING [None]
  - DEPENDENCE [None]
  - DEPRESSION [None]
  - DIZZINESS [None]
  - DRUG DEPENDENCE [None]
  - DRUG WITHDRAWAL SYNDROME [None]
  - DYSPEPSIA [None]
  - FATIGUE [None]
  - GASTROINTESTINAL DISORDER [None]
  - HEADACHE [None]
  - HYPERHIDROSIS [None]
  - INSOMNIA [None]
  - IRRITABILITY [None]
  - MUSCLE CRAMP [None]
  - NAUSEA [None]
  - PALPITATIONS [None]
  - PARAESTHESIA [None]
  - SENSORY DISTURBANCE [None]
  - SLEEP DISORDER [None]
  - TREMOR [None]
